FAERS Safety Report 4588197-4 (Version None)
Quarter: 2005Q1

REPORT INFORMATION
  Report Type: 
  Country: None (occurrence: None)
  Receive Date: 20050221
  Receipt Date: 20050210
  Transmission Date: 20050727
  Serious: Yes (Hospitalization)
  Sender: FDA-Public Use
  Company Number: FI-GLAXOSMITHKLINE-B0371981A

PATIENT
  Age: 38 Year
  Sex: Male

DRUGS (8)
  1. LAMICTAL [Suspect]
     Indication: DELUSION
     Dosage: 100MG PER DAY
     Route: 048
     Dates: start: 20030201, end: 20050127
  2. ABILIFY [Suspect]
     Indication: DELUSION
     Dosage: 30MG PER DAY
     Route: 048
     Dates: start: 20031101, end: 20050127
  3. LEVOZIN [Suspect]
     Indication: DELUSION
     Dosage: 600MG PER DAY
     Route: 048
     Dates: end: 20050127
  4. GAVISCON [Concomitant]
     Indication: GASTRIC DISORDER
     Dosage: 30ML PER DAY
     Route: 048
  5. TEMESTA [Concomitant]
     Indication: AGITATION
     Dosage: 4MG PER DAY
     Route: 048
  6. VITAMIN D [Concomitant]
     Indication: VITAMIN SUPPLEMENTATION
     Dosage: 10MG PER DAY
     Route: 048
  7. ATIVAN [Concomitant]
     Indication: AGITATION
     Dosage: 2MGML AS REQUIRED
     Route: 030
  8. TENOX [Concomitant]
     Indication: AGITATION
     Dosage: 20MG PER DAY
     Route: 048

REACTIONS (4)
  - NEUTROPENIA [None]
  - NEUTROPENIC SEPSIS [None]
  - PLATELET COUNT DECREASED [None]
  - RED BLOOD CELL COUNT DECREASED [None]
